FAERS Safety Report 6326702-8 (Version None)
Quarter: 2009Q3

REPORT INFORMATION
  Report Type: 
  Country: None (occurrence: None)
  Receive Date: 20090825
  Receipt Date: 20090817
  Transmission Date: 20100115
  Serious: Yes (Other)
  Sender: FDA-Public Use
  Company Number: PHHY2009DE34785

PATIENT
  Age: 74 Year
  Sex: Female

DRUGS (7)
  1. ZOMETA [Suspect]
  2. AMLODIPINE [Concomitant]
  3. ASPIRIN [Concomitant]
  4. CALCIUM [Concomitant]
  5. LEVOTHYROXINE SODIUM [Concomitant]
  6. PANTOPRAZOLE SODIUM [Concomitant]
  7. PIRACETAM [Concomitant]

REACTIONS (1)
  - OSTEONECROSIS [None]
